FAERS Safety Report 6600629-6 (Version None)
Quarter: 2010Q1

REPORT INFORMATION
  Report Type: 
  Country: None (occurrence: None)
  Receive Date: 20100224
  Receipt Date: 20100218
  Transmission Date: 20100710
  Serious: Yes (Disabling)
  Sender: FDA-Public Use
  Company Number: GB-AMGEN-US394663

PATIENT
  Sex: Male

DRUGS (4)
  1. ENBREL [Suspect]
     Indication: JUVENILE ARTHRITIS
     Route: 058
     Dates: start: 20091103
  2. IBUPROFEN [Concomitant]
     Dosage: 400 MG TDS AS REQUIRED
     Route: 048
     Dates: start: 20090701
  3. PREDNISOLONE [Concomitant]
     Route: 048
     Dates: start: 20091101, end: 20091101
  4. PREDNISOLONE [Concomitant]
     Route: 048
     Dates: start: 20091101

REACTIONS (3)
  - DECREASED APPETITE [None]
  - INJECTION SITE PRURITUS [None]
  - INJECTION SITE RASH [None]
